FAERS Safety Report 6024624-3 (Version None)
Quarter: 2008Q4

REPORT INFORMATION
  Report Type: 
  Country: None (occurrence: None)
  Receive Date: 20081229
  Receipt Date: 20081229
  Transmission Date: 20090506
  Serious: Yes (Hospitalization)
  Sender: FDA-Public Use
  Company Number: None

PATIENT
  Sex: Male
  Weight: 79 kg

DRUGS (5)
  1. VINCRISTINE SULFATE [Suspect]
     Dosage: 2 MG
  2. CYCLOPHOSPHAMIDE [Suspect]
     Dosage: 1420 MG
  3. DOXORUBICIN HYDROCHLORIDE [Suspect]
     Dosage: 94 MG
  4. PREDNISONE [Suspect]
     Dosage: 400 MG
  5. RITUXIMAB (MOAB C2B8 ANTI CD20, CHIMERIC) [Suspect]
     Dosage: 700 MG

REACTIONS (3)
  - ILEUS [None]
  - NO THERAPEUTIC RESPONSE [None]
  - PERITONEAL EFFUSION [None]
